FAERS Safety Report 8441809-7 (Version None)
Quarter: 2012Q2

REPORT INFORMATION
  Report Type: 
  Country: None (occurrence: None)
  Receive Date: 20120615
  Receipt Date: 20120612
  Transmission Date: 20120825
  Serious: Yes (Other)
  Sender: FDA-Public Use
  Company Number: US-PFIZER INC-2012092871

PATIENT
  Sex: Female

DRUGS (4)
  1. DEPAKOTE [Concomitant]
     Indication: BIPOLAR DISORDER
     Dosage: UNK
  2. PREVPAC [Concomitant]
     Dosage: UNK
  3. CHANTIX [Suspect]
     Indication: SMOKING CESSATION THERAPY
     Dosage: 0.5 MG, 1X/DAY
     Route: 048
     Dates: start: 20120412
  4. XANAX [Concomitant]
     Dosage: UNK

REACTIONS (6)
  - EYE PAIN [None]
  - INSOMNIA [None]
  - HEADACHE [None]
  - EYE DISORDER [None]
  - FEELING JITTERY [None]
  - VOMITING [None]
